FAERS Safety Report 14764380 (Version 1)
Quarter: 2018Q2

REPORT INFORMATION
  Report Type: Spontaneous
  Country: CM (occurrence: CM)
  Receive Date: 20180416
  Receipt Date: 20180416
  Transmission Date: 20180711
  Serious: Yes (Life-Threatening, Hospitalization, Disabling)
  Sender: FDA-Public Use
  Company Number: CM-SCIEGEN PHARMACEUTICALS INC-2018SCILIT00200

PATIENT
  Age: 41 Month
  Sex: Male

DRUGS (5)
  1. NEVIRAPINE TABLETS [Suspect]
     Active Substance: NEVIRAPINE
     Dosage: 100 MG, BID, OVER THE NEXT 2 WEEKS
     Route: 065
  2. LAMIVUDINE. [Suspect]
     Active Substance: LAMIVUDINE
     Indication: HIV INFECTION WHO CLINICAL STAGE III
     Dosage: 30 MG, QD
     Route: 065
  3. COTRIMOXAZOLE [Concomitant]
     Active Substance: SULFAMETHOXAZOLE\TRIMETHOPRIM
     Indication: OPPORTUNISTIC INFECTION PROPHYLAXIS
     Dosage: 480 MG, QD
     Route: 065
  4. NEVIRAPINE TABLETS [Suspect]
     Active Substance: NEVIRAPINE
     Indication: HIV INFECTION WHO CLINICAL STAGE III
     Dosage: 100 MG, QD, FOR TWO WEEKS
     Route: 065
     Dates: start: 201303
  5. ZIDOVUDINE. [Suspect]
     Active Substance: ZIDOVUDINE
     Indication: HIV INFECTION WHO CLINICAL STAGE III
     Dosage: 60 MG, QD
     Route: 065

REACTIONS (2)
  - Toxic epidermal necrolysis [Recovered/Resolved]
  - Blindness [Not Recovered/Not Resolved]
